FAERS Safety Report 5872332-1 (Version None)
Quarter: 2008Q3

REPORT INFORMATION
  Report Type: 
  Country: None (occurrence: None)
  Receive Date: 20080905
  Receipt Date: 20080827
  Transmission Date: 20090109
  Serious: Yes (Other)
  Sender: FDA-Public Use
  Company Number: GB-ALLERGAN-0810724US

PATIENT
  Sex: Male

DRUGS (2)
  1. COMBIGAN [Suspect]
     Indication: DRUG USE FOR UNKNOWN INDICATION
     Route: 047
  2. TRAVATAN [Concomitant]

REACTIONS (5)
  - ABNORMAL SENSATION IN EYE [None]
  - DIABETES MELLITUS INADEQUATE CONTROL [None]
  - EYE INFECTION [None]
  - EYE PRURITUS [None]
  - LACRIMATION INCREASED [None]
